FAERS Safety Report 5606839-9 (Version None)
Quarter: 2008Q1

REPORT INFORMATION
  Report Type: 
  Country: None (occurrence: None)
  Receive Date: 20080129
  Receipt Date: 20080122
  Transmission Date: 20080703
  Serious: Yes (Other)
  Sender: FDA-Public Use
  Company Number: IT-BOEHRINGER INGELHEIM GMBH, GERMANY-2008-DE-00398GD

PATIENT
  Sex: Male

DRUGS (9)
  1. NEVIRAPINE [Suspect]
     Indication: HIV INFECTION
  2. METHOTREXATE [Suspect]
     Indication: B-CELL LYMPHOMA
     Dosage: REDUCED DOSE (-500 MG/ME2 INSTEAD OF 5000 MG/ME2)
  3. METHOTREXATE [Suspect]
     Indication: NON-HODGKIN'S LYMPHOMA
  4. METHOTREXATE [Suspect]
     Indication: LYMPHOMA
  5. STAVUDINE [Suspect]
     Indication: HIV INFECTION
  6. NELFINAVIR [Suspect]
     Indication: HIV INFECTION
  7. ANTINEOPLASTIC AGENTS [Concomitant]
     Indication: B-CELL LYMPHOMA
  8. ANTINEOPLASTIC AGENTS [Concomitant]
     Indication: NON-HODGKIN'S LYMPHOMA
  9. ANTINEOPLASTIC AGENTS [Concomitant]
     Indication: LYMPHOMA

REACTIONS (6)
  - CYTOMEGALOVIRUS CHORIORETINITIS [None]
  - GENOTYPE DRUG RESISTANCE TEST POSITIVE [None]
  - IRIDOCYCLITIS [None]
  - NEUTROPENIA [None]
  - NO THERAPEUTIC RESPONSE [None]
  - SMOOTH MUSCLE ANTIBODY POSITIVE [None]
